FAERS Safety Report 24984404 (Version 2)
Quarter: 2025Q1

REPORT INFORMATION
  Report Type: Spontaneous
  Country: US (occurrence: US)
  Receive Date: 20250219
  Receipt Date: 20250306
  Transmission Date: 20250408
  Serious: Yes (Death, Life-Threatening, Hospitalization, Other)
  Sender: ALKEM
  Company Number: None

PATIENT
  Age: 56 Year
  Sex: Female

DRUGS (19)
  1. CEFDINIR [Suspect]
     Active Substance: CEFDINIR
     Indication: Enterococcal infection
     Dosage: 300 MILLIGRAM, BID
     Route: 048
  2. CEFDINIR [Suspect]
     Active Substance: CEFDINIR
     Indication: Abdominal infection
  3. CEFDINIR [Suspect]
     Active Substance: CEFDINIR
     Indication: Escherichia infection
  4. LINEZOLID [Suspect]
     Active Substance: LINEZOLID
     Indication: Abdominal infection
     Dosage: 600 MILLIGRAM, BID
     Route: 048
  5. LINEZOLID [Suspect]
     Active Substance: LINEZOLID
     Indication: Escherichia infection
     Dosage: 600 MILLIGRAM, BID
     Route: 042
  6. LINEZOLID [Suspect]
     Active Substance: LINEZOLID
     Indication: Enterococcal infection
  7. CEFTRIAXONE [Concomitant]
     Active Substance: CEFTRIAXONE
     Indication: Abdominal infection
     Route: 065
  8. CEFTRIAXONE [Concomitant]
     Active Substance: CEFTRIAXONE
     Indication: Escherichia infection
  9. CEFTRIAXONE [Concomitant]
     Active Substance: CEFTRIAXONE
     Indication: Enterococcal infection
  10. DAPTOMYCIN [Concomitant]
     Active Substance: DAPTOMYCIN
     Indication: Abdominal infection
     Route: 065
  11. DAPTOMYCIN [Concomitant]
     Active Substance: DAPTOMYCIN
     Indication: Escherichia infection
  12. DAPTOMYCIN [Concomitant]
     Active Substance: DAPTOMYCIN
     Indication: Enterococcal infection
  13. MEROPENEM [Concomitant]
     Active Substance: MEROPENEM
     Indication: Abdominal infection
     Dosage: 1 GRAM, TID
     Route: 042
  14. MEROPENEM [Concomitant]
     Active Substance: MEROPENEM
     Indication: Escherichia infection
  15. MEROPENEM [Concomitant]
     Active Substance: MEROPENEM
     Indication: Enterococcal infection
  16. METRONIDAZOLE [Concomitant]
     Active Substance: METRONIDAZOLE
     Indication: Abdominal infection
     Route: 065
  17. METRONIDAZOLE [Concomitant]
     Active Substance: METRONIDAZOLE
     Indication: Escherichia infection
  18. METRONIDAZOLE [Concomitant]
     Active Substance: METRONIDAZOLE
     Indication: Enterococcal infection
  19. PIPERACILLIN SODIUM\TAZOBACTAM SODIUM [Concomitant]
     Active Substance: PIPERACILLIN SODIUM\TAZOBACTAM SODIUM
     Indication: Sepsis
     Route: 065

REACTIONS (9)
  - Lactic acidosis [Fatal]
  - Pancreatitis acute [Fatal]
  - Pancreatitis necrotising [Fatal]
  - Shock [Fatal]
  - Hepatic steatosis [Fatal]
  - Fat necrosis [Fatal]
  - Hypoglycaemia [Fatal]
  - Medication error in transfer of care [Unknown]
  - Nausea [Unknown]
